FAERS Safety Report 15527551 (Version 1)
Quarter: 2018Q4

REPORT INFORMATION
  Report Type: Spontaneous
  Country: US (occurrence: US)
  Receive Date: 20181018
  Receipt Date: 20181018
  Transmission Date: 20190205
  Serious: No
  Sender: FDA-Public Use
  Company Number: US-JNJFOC-20181009074

PATIENT
  Age: 66 Year
  Sex: Female
  Weight: 96.16 kg

DRUGS (1)
  1. TREMFYA [Suspect]
     Active Substance: GUSELKUMAB
     Indication: PSORIASIS
     Route: 058
     Dates: start: 201805

REACTIONS (3)
  - Nasopharyngitis [Unknown]
  - Headache [Unknown]
  - Feeling abnormal [Unknown]
